FAERS Safety Report 5245269-9 (Version None)
Quarter: 2007Q1

REPORT INFORMATION
  Report Type: 
  Country: None (occurrence: None)
  Receive Date: 20070223
  Receipt Date: 20070221
  Transmission Date: 20070707
  Serious: Yes (Other)
  Sender: FDA-Public Use
  Company Number: CA-GLAXOSMITHKLINE-A0630810A

PATIENT
  Age: 58 Year
  Weight: 128.2 kg

DRUGS (12)
  1. AVANDIA [Suspect]
     Indication: DRUG USE FOR UNKNOWN INDICATION
     Dosage: 4MG TWICE PER DAY
     Route: 048
  2. HUMALOG [Concomitant]
     Route: 042
     Dates: start: 20031030
  3. AVANDAMET [Concomitant]
     Dosage: 1TAB TWICE PER DAY
     Route: 048
  4. EFFEXOR [Concomitant]
     Route: 048
  5. LIPITOR [Concomitant]
     Dosage: 20MG PER DAY
     Route: 048
  6. ALTACE [Concomitant]
     Dosage: 10MG PER DAY
     Route: 048
  7. ARTHROTEC [Concomitant]
     Dosage: 60MG TWICE PER DAY
     Route: 048
  8. NORVASC [Concomitant]
     Dosage: 10MG PER DAY
     Route: 048
  9. HYDROCHLOROTHIAZIDE [Concomitant]
     Dosage: 25MG PER DAY
     Route: 048
  10. ASPIRIN [Concomitant]
  11. B12 [Concomitant]
  12. FOLIC ACID [Concomitant]

REACTIONS (5)
  - DIABETES MELLITUS [None]
  - DRUG INEFFECTIVE [None]
  - HYPERGLYCAEMIA [None]
  - INSULIN RESISTANCE [None]
  - WEIGHT INCREASED [None]
